FAERS Safety Report 10487053 (Version 1)
Quarter: 2014Q4

REPORT INFORMATION
  Report Type: Report from Study
  Country: ES (occurrence: ES)
  Receive Date: 20141001
  Receipt Date: 20141001
  Transmission Date: 20150528
  Serious: Yes (Hospitalization, Other)
  Sender: FDA-Public Use
  Company Number: ES-ABBVIE-14K-144-1288389-00

PATIENT
  Sex: Male
  Weight: 82 kg

DRUGS (1)
  1. HUMIRA [Suspect]
     Active Substance: ADALIMUMAB
     Indication: PSORIASIS
     Dates: start: 201109

REACTIONS (3)
  - Procedural pain [Unknown]
  - Exostosis [Recovered/Resolved]
  - Osteoarthritis [Recovered/Resolved]
